FAERS Safety Report 8707464 (Version 4)
Quarter: 2013Q2

REPORT INFORMATION
  Report Type: Spontaneous
  Country: US (occurrence: US)
  Receive Date: 20120804
  Receipt Date: 20130521
  Transmission Date: 20140414
  Serious: Yes (Hospitalization)
  Sender: FDA-Public Use
  Company Number: US-009507513-1208USA000388

PATIENT
  Sex: Male

DRUGS (5)
  1. SINGULAIR [Suspect]
     Indication: ASTHMA
     Dosage: 5 MG, QD
     Route: 048
     Dates: start: 20091027, end: 20120621
  2. NASONEX [Concomitant]
     Indication: ASTHMA
     Route: 045
  3. DULERA [Concomitant]
     Route: 055
  4. ABILIFY [Concomitant]
  5. VYVANSE [Concomitant]

REACTIONS (8)
  - Mental disorder [Recovering/Resolving]
  - Delusion [Recovering/Resolving]
  - Fear [Recovering/Resolving]
  - Suicidal ideation [Recovering/Resolving]
  - Hallucination [Recovering/Resolving]
  - Weight increased [Unknown]
  - Asthma [Unknown]
  - Syncope [Unknown]
